FAERS Safety Report 5595423-1 (Version None)
Quarter: 2008Q1

REPORT INFORMATION
  Report Type: 
  Country: None (occurrence: None)
  Receive Date: 20080118
  Receipt Date: 20080111
  Transmission Date: 20080703
  Serious: Yes (Hospitalization)
  Sender: FDA-Public Use
  Company Number: US-NOVOPROD-271023

PATIENT
  Sex: Male
  Weight: 62 kg

DRUGS (2)
  1. NOVOSEVEN [Suspect]
     Indication: HAEMOPHILIA A WITH ANTI FACTOR VIII
     Dosage: 7.2 MG, PRN
     Route: 042
     Dates: start: 20060101
  2. NOVOSEVEN [Suspect]
     Dosage: 150 MG/KG, UNK
     Route: 042
     Dates: start: 20071001

REACTIONS (2)
  - CATHETER RELATED INFECTION [None]
  - POST PROCEDURAL HAEMATOMA [None]
